FAERS Safety Report 7244320-4 (Version None)
Quarter: 2011Q1

REPORT INFORMATION
  Report Type: 
  Country: None (occurrence: None)
  Receive Date: 20110125
  Receipt Date: 20110117
  Transmission Date: 20110831
  Serious: Yes (Hospitalization)
  Sender: FDA-Public Use
  Company Number: US-JNJFOC-20110104805

PATIENT
  Age: 26 Year
  Sex: Male

DRUGS (1)
  1. REMICADE [Suspect]
     Indication: COLITIS ULCERATIVE
     Route: 042

REACTIONS (7)
  - COLD SWEAT [None]
  - DYSPNOEA [None]
  - VOMITING PROJECTILE [None]
  - INFUSION RELATED REACTION [None]
  - ERYTHEMA [None]
  - HYPOXIA [None]
  - ABDOMINAL PAIN UPPER [None]
